FAERS Safety Report 8616647 (Version 3)
Quarter: 2013Q2

REPORT INFORMATION
  Report Type: Report from Study
  Country: US (occurrence: US)
  Receive Date: 20120615
  Receipt Date: 20130614
  Transmission Date: 20140414
  Serious: Yes (Other)
  Sender: FDA-Public Use
  Company Number: US-JNJFOC-20120604607

PATIENT
  Age: 71 Year
  Sex: Male
  Weight: 57.61 kg

DRUGS (8)
  1. USTEKINUMAB [Suspect]
     Indication: PSORIASIS
     Route: 058
     Dates: start: 20091125
  2. USTEKINUMAB [Suspect]
     Indication: PSORIASIS
     Route: 058
     Dates: start: 20120421
  3. USTEKINUMAB [Suspect]
     Indication: PSORIASIS
     Route: 058
     Dates: start: 201011
  4. CORTICOSTEROIDS, DERMATOLOGICAL PREPARATIONS [Concomitant]
     Route: 061
  5. VITAMIN  D [Concomitant]
     Route: 061
  6. VANOS [Concomitant]
     Route: 061
     Dates: start: 20090325
  7. TACLONEX [Concomitant]
     Route: 061
     Dates: start: 20090824
  8. CLOBEX [Concomitant]
     Dates: start: 20090325

REACTIONS (1)
  - Pulmonary tuberculosis [Recovered/Resolved]
